FAERS Safety Report 15793083 (Version 5)
Quarter: 2019Q1

REPORT INFORMATION
  Report Type: Report from Study
  Country: DE (occurrence: DE)
  Receive Date: 20190107
  Receipt Date: 20190228
  Transmission Date: 20190417
  Serious: Yes (Hospitalization)
  Sender: FDA-Public Use
  Company Number: PHHO2019DE000470

PATIENT
  Age: 73 Year
  Sex: Female
  Weight: 76 kg

DRUGS (6)
  1. BLINDED LLG783 [Suspect]
     Active Substance: INVESTIGATIONAL PRODUCT
     Indication: PERIPHERAL ARTERIAL OCCLUSIVE DISEASE
     Dosage: CODE NOT BROKEN
     Route: 042
     Dates: start: 20180424
  2. CANDESARTAN. [Concomitant]
     Active Substance: CANDESARTAN
     Indication: HYPERTENSION
     Dosage: 1 DF (32/12.5 MG), QD
     Route: 048
     Dates: start: 20170307
  3. BLINDED PLACEBO [Suspect]
     Active Substance: INVESTIGATIONAL PRODUCT
     Indication: PERIPHERAL ARTERIAL OCCLUSIVE DISEASE
     Dosage: CODE NOT BROKEN
     Route: 042
     Dates: start: 20180424
  4. BLINDED NO TREATMENT RECEIVED [Suspect]
     Active Substance: INVESTIGATIONAL PRODUCT
     Indication: PERIPHERAL ARTERIAL OCCLUSIVE DISEASE
     Dosage: CODE NOT BROKEN
     Route: 042
     Dates: start: 20180424
  5. BLINDED LLG783 [Suspect]
     Active Substance: INVESTIGATIONAL PRODUCT
     Indication: PERIPHERAL ARTERIAL OCCLUSIVE DISEASE
     Dosage: CODE NOT BROKEN
     Route: 042
     Dates: start: 20180424
  6. ACETYLSALICYLIC ACID [Concomitant]
     Active Substance: ASPIRIN
     Indication: PERIPHERAL ARTERIAL OCCLUSIVE DISEASE
     Dosage: 100 MG, QD
     Route: 048
     Dates: start: 2014

REACTIONS (2)
  - Haemorrhagic anaemia [Recovered/Resolved]
  - Peripheral arterial occlusive disease [Recovered/Resolved]

NARRATIVE: CASE EVENT DATE: 20181212
